FAERS Safety Report 4324877-3 (Version None)
Quarter: 2004Q1

REPORT INFORMATION
  Report Type: 
  Country: None (occurrence: None)
  Receive Date: 20040326
  Receipt Date: 20040219
  Transmission Date: 20041129
  Serious: Yes (Disabling)
  Sender: FDA-Public Use
  Company Number: PHBS2004CA02561

PATIENT
  Age: 70 Year
  Sex: Female

DRUGS (3)
  1. FEMARA [Suspect]
     Indication: BREAST CANCER METASTATIC
     Dosage: 2.5 MG/DAY
     Route: 048
     Dates: start: 20011029
  2. ALTACE [Concomitant]
     Dosage: 10 MG/D
     Route: 065
  3. SYNTHROID [Concomitant]
     Dosage: 0.075 MG/D
     Route: 065

REACTIONS (3)
  - CRYING [None]
  - JOINT SPRAIN [None]
  - MUSCULAR WEAKNESS [None]
